FAERS Safety Report 5441592-3 (Version None)
Quarter: 2007Q3

REPORT INFORMATION
  Report Type: 
  Country: None (occurrence: None)
  Receive Date: 20070829
  Receipt Date: 20070820
  Transmission Date: 20080115
  Serious: Yes (Hospitalization)
  Sender: FDA-Public Use
  Company Number: 2007-163122-NL

PATIENT
  Age: 33 Year
  Sex: Female

DRUGS (1)
  1. ETONOGESTREL [Suspect]
     Dates: start: 20070329, end: 20070730

REACTIONS (3)
  - BIPOLAR I DISORDER [None]
  - STRESS [None]
  - VAGINAL HAEMORRHAGE [None]
